FAERS Safety Report 8610902-8 (Version None)
Quarter: 2012Q3

REPORT INFORMATION
  Report Type: 
  Country: None (occurrence: None)
  Receive Date: 20120802
  Receipt Date: 20120726
  Transmission Date: 20120928
  Serious: Yes (Other)
  Sender: FDA-Public Use
  Company Number: DSA_55107_2012

PATIENT
  Sex: Female

DRUGS (3)
  1. XENAZINE [Suspect]
     Indication: HUNTINGTON'S DISEASE
     Dosage: (12.5 MG BID ORAL)
     Route: 048
     Dates: start: 20120308, end: 20120629
  2. PHENERGAN [Concomitant]
  3. LYRICA [Concomitant]

REACTIONS (4)
  - AGGRESSION [None]
  - PAIN IN EXTREMITY [None]
  - COMPULSIVE LIP BITING [None]
  - DEPRESSION [None]
